APPROVED DRUG PRODUCT: PENTOSTATIN
Active Ingredient: PENTOSTATIN
Strength: 10MG/VIAL
Dosage Form/Route: INJECTABLE;INJECTION
Application: A077841 | Product #001 | TE Code: AP
Applicant: WEST-WARD PHARMACEUTICALS INTERNATIONAL LTD
Approved: Aug 7, 2007 | RLD: No | RS: No | Type: RX